FAERS Safety Report 6743749-8 (Version None)
Quarter: 2010Q2

REPORT INFORMATION
  Report Type: 
  Country: None (occurrence: None)
  Receive Date: 20100526
  Receipt Date: 20100526
  Transmission Date: 20101027
  Serious: Yes (Disabling)
  Sender: FDA-Public Use
  Company Number: None

PATIENT
  Sex: Female
  Weight: 77.5651 kg

DRUGS (10)
  1. CITALOPRAM HYDROBROMIDE [Suspect]
     Indication: ANTIDEPRESSANT THERAPY
     Dosage: 40MG DAILY P.O.
     Route: 048
     Dates: start: 20080101
  2. MELOXICAM [Suspect]
     Indication: INFLAMMATION
     Dosage: 7.5MG DAILY P.O.
     Route: 048
     Dates: start: 20080101
  3. MELOXICAM [Suspect]
     Indication: JOINT EFFUSION
     Dosage: 7.5MG DAILY P.O.
     Route: 048
     Dates: start: 20080101
  4. TRAZODONE HYDROCHLORIDE [Suspect]
  5. RISPERDAL [Suspect]
  6. COMBIVENT [Concomitant]
  7. ADVAIR DISKUS 100/50 [Concomitant]
  8. VESICARE [Concomitant]
  9. LIPITOR [Concomitant]
  10. VENTOLIN [Concomitant]

REACTIONS (4)
  - BLOOD URINE PRESENT [None]
  - PRODUCT COLOUR ISSUE [None]
  - SOMNOLENCE [None]
  - URINARY TRACT INFECTION [None]
